FAERS Safety Report 17508012 (Version 1)
Quarter: 2020Q1

REPORT INFORMATION
  Report Type: Spontaneous
  Country: RU (occurrence: RU)
  Receive Date: 20200306
  Receipt Date: 20200306
  Transmission Date: 20200409
  Serious: Yes (Life-Threatening)
  Sender: FDA-Public Use
  Company Number: RU-TEVA-2020-RU-1193576

PATIENT
  Age: 31 Year
  Sex: Female
  Weight: 70 kg

DRUGS (4)
  1. FAYCOMPA [Concomitant]
     Indication: STATUS EPILEPTICUS
     Route: 048
  2. TOPSAVER [Suspect]
     Active Substance: TOPIRAMATE
     Indication: EPILEPSY
     Dosage: DAILY DOSE- 400 MG / 400 / 400MG
     Route: 048
  3. LAMICTAL [Concomitant]
     Active Substance: LAMOTRIGINE
     Dosage: INDICATION: REPLACEMENT IS UNACCEPTABLE DUE TO THE DEVELOPMENT OF STATUS EPILEPTICUS
     Route: 048
     Dates: start: 20120107
  4. TOREAL [Suspect]
     Active Substance: TOPIRAMATE
     Indication: EPILEPSY
     Dosage: 400 MG / 400 / 400MG
     Route: 048

REACTIONS (4)
  - Drug ineffective [Unknown]
  - Rash pruritic [Recovered/Resolved]
  - Hypersensitivity [Recovered/Resolved]
  - Nausea [Recovered/Resolved]
